FAERS Safety Report 4367139-0 (Version None)
Quarter: 2004Q2

REPORT INFORMATION
  Report Type: 
  Country: None (occurrence: None)
  Receive Date: 20040528
  Receipt Date: 20040521
  Transmission Date: 20050107
  Serious: Yes (Disabling)
  Sender: FDA-Public Use
  Company Number: GB-GLAXOSMITHKLINE-B0333560A

PATIENT
  Weight: 57.2 kg

DRUGS (3)
  1. PAROXETINE HCL [Suspect]
     Indication: DEPRESSION
     Dosage: 20MG UNKNOWN
     Route: 048
     Dates: start: 20040425, end: 20040429
  2. TRAZODONE HCL [Concomitant]
     Indication: DEPRESSION
     Dosage: 100MG PER DAY
     Route: 048
     Dates: start: 19990101
  3. TRIFLUOPERAZINE HCL [Concomitant]
     Dosage: 10MG PER DAY
     Route: 048
     Dates: start: 19990101

REACTIONS (3)
  - HOT FLUSH [None]
  - NAUSEA [None]
  - TREMOR [None]
